FAERS Safety Report 16627660 (Version 1)
Quarter: 2019Q3

REPORT INFORMATION
  Report Type: Spontaneous
  Country: US (occurrence: US)
  Receive Date: 20190611
  Receipt Date: 20190611
  Transmission Date: 20191004
  Serious: Yes (Other)
  Sender: FDA-Public Use
  Company Number: None

PATIENT
  Age: 84 Year
  Sex: Female
  Weight: 88.9 kg

DRUGS (11)
  1. OMEPREZOLE [Concomitant]
     Active Substance: OMEPRAZOLE
  2. CENTRUM SILVER [Concomitant]
     Active Substance: MINERALS\VITAMINS
  3. BENEDRIL [Concomitant]
  4. DOXYCYCLINE HYCLATE 100MG TAB [Suspect]
     Active Substance: DOXYCYCLINE HYCLATE
     Indication: NASOPHARYNGITIS
     Dosage: ?          QUANTITY:2 DF DOSAGE FORM;?
     Route: 048
     Dates: start: 20190430
  5. AMLODIPINE [Concomitant]
     Active Substance: AMLODIPINE BESYLATE
  6. BENEZAPRIL [Concomitant]
  7. LASIX [Concomitant]
     Active Substance: FUROSEMIDE
  8. POTASSIUM [Concomitant]
     Active Substance: POTASSIUM
  9. ATENOLOL. [Concomitant]
     Active Substance: ATENOLOL
  10. INSULIN [Concomitant]
     Active Substance: INSULIN NOS
  11. ACETAMNETPHINE #4 [Concomitant]

REACTIONS (3)
  - Red blood cell count decreased [None]
  - Diarrhoea [None]
  - Faeces discoloured [None]

NARRATIVE: CASE EVENT DATE: 20190501
